FAERS Safety Report 16732799 (Version 1)
Quarter: 2019Q3

REPORT INFORMATION
  Report Type: Spontaneous
  Country: CA (occurrence: CA)
  Receive Date: 20190823
  Receipt Date: 20190823
  Transmission Date: 20191005
  Serious: No
  Sender: FDA-Public Use
  Company Number: CA-ALKEM LABORATORIES LIMITED-TR-ALKEM-2019-04558

PATIENT
  Age: 65 Year
  Sex: Male

DRUGS (3)
  1. RASAGILINE MESYLATE. [Suspect]
     Active Substance: RASAGILINE MESYLATE
     Indication: PARKINSON^S DISEASE
     Dosage: 2 MILLIGRAM, QD
     Route: 065
  2. RASAGILINE MESYLATE. [Suspect]
     Active Substance: RASAGILINE MESYLATE
     Dosage: 2 UNK
     Route: 065
  3. LEVODOPA [Concomitant]
     Active Substance: LEVODOPA
     Indication: PARKINSON^S DISEASE
     Dosage: UNK
     Route: 065

REACTIONS (1)
  - Spontaneous ejaculation [Unknown]
